FAERS Safety Report 8919382 (Version 2)
Quarter: 2012Q4

REPORT INFORMATION
  Report Type: Spontaneous
  Country: CA (occurrence: None)
  Receive Date: 20121114
  Receipt Date: 20121130
  Transmission Date: 20130627
  Serious: Yes (Death, Hospitalization)
  Sender: FDA-Public Use
  Company Number: UTC-025129

PATIENT
  Age: 64 Year
  Sex: Male

DRUGS (1)
  1. REMODULIN (10 MILLIGRAM/MILLILITERS, INJECTION FOR INFUSION) (TREPROSTINIL SODIUM) [Suspect]
     Indication: IDIOPATHIC PULMONARY ARTERIAL HYPERTENSION
     Route: 058
     Dates: start: 20110830

REACTIONS (2)
  - Pleural effusion [None]
  - Death [None]
